FAERS Safety Report 4300804-X (Version None)
Quarter: 2004Q1

REPORT INFORMATION
  Report Type: 
  Country: None (occurrence: None)
  Receive Date: 20040218
  Receipt Date: 20040205
  Transmission Date: 20041129
  Serious: Yes (Other)
  Sender: FDA-Public Use
  Company Number: US-JNJFOC-20040201728

PATIENT
  Age: 50 Year
  Sex: Male
  Weight: 113.3993 kg

DRUGS (3)
  1. REMICADE [Suspect]
     Indication: CROHN'S DISEASE
     Dosage: 7 MG/KG, INTRAVENOUS
     Route: 042
     Dates: start: 20031216
  2. MERCAPTOPURINE [Concomitant]
  3. NEXIUM [Concomitant]

REACTIONS (1)
  - PSORIASIS [None]
